FAERS Safety Report 24548726 (Version 1)
Quarter: 2024Q4

REPORT INFORMATION
  Report Type: Spontaneous
  Country: FR (occurrence: FR)
  Receive Date: 20241025
  Receipt Date: 20241025
  Transmission Date: 20250114
  Serious: Yes (Hospitalization, Other)
  Sender: REGENERON
  Company Number: None

PATIENT
  Age: 59 Year
  Sex: Female

DRUGS (3)
  1. PRALUENT [Suspect]
     Active Substance: ALIROCUMAB
     Indication: Hypercholesterolaemia
     Dosage: 300 MG, 1X
     Route: 058
     Dates: start: 20240702, end: 20240702
  2. PRALUENT [Suspect]
     Active Substance: ALIROCUMAB
     Dosage: 300 MG, 1X
     Route: 058
     Dates: start: 20240801, end: 20240801
  3. PRALUENT [Suspect]
     Active Substance: ALIROCUMAB
     Dosage: 300 MG, 1X
     Route: 058
     Dates: start: 20240815, end: 20240815

REACTIONS (6)
  - Immune thrombocytopenia [Not Recovered/Not Resolved]
  - Cerebral haemorrhage [Not Recovered/Not Resolved]
  - Chest pain [Not Recovered/Not Resolved]
  - Haematoma [Not Recovered/Not Resolved]
  - Petechiae [Not Recovered/Not Resolved]
  - Inappropriate schedule of product administration [Unknown]

NARRATIVE: CASE EVENT DATE: 20240802
